FAERS Safety Report 21337015 (Version 1)
Quarter: 2022Q3

REPORT INFORMATION
  Report Type: Spontaneous
  Country: US (occurrence: US)
  Receive Date: 20220915
  Receipt Date: 20220915
  Transmission Date: 20221026
  Serious: Yes (Life-Threatening, Hospitalization, Other)
  Sender: FDA-Public Use
  Company Number: US-INCYTE CORPORATION-2022IN008835

PATIENT

DRUGS (1)
  1. JAKAFI [Suspect]
     Active Substance: RUXOLITINIB
     Indication: Mantle cell lymphoma
     Dosage: 10 MILLIGRAM, QD
     Route: 048
     Dates: start: 202008

REACTIONS (3)
  - Myocardial infarction [Unknown]
  - Organ failure [Unknown]
  - Off label use [Unknown]

NARRATIVE: CASE EVENT DATE: 20220801
